FAERS Safety Report 5065978-4 (Version None)
Quarter: 2006Q3

REPORT INFORMATION
  Report Type: 
  Country: None (occurrence: None)
  Receive Date: 20060728
  Receipt Date: 20060728
  Transmission Date: 20061208
  Serious: Yes (Other)
  Sender: FDA-Public Use
  Company Number: None

PATIENT
  Age: 34 Year
  Sex: Female
  Weight: 46.7205 kg

DRUGS (1)
  1. CIPRO [Suspect]
     Indication: URINARY TRACT INFECTION
     Dosage: 500 MG    2 TIMES A DAY   PO
     Route: 048
     Dates: start: 20060727, end: 20060727

REACTIONS (3)
  - CONFUSIONAL STATE [None]
  - INSOMNIA [None]
  - MUSCULAR WEAKNESS [None]
